FAERS Safety Report 6497539-4 (Version None)
Quarter: 2009Q4

REPORT INFORMATION
  Report Type: 
  Country: None (occurrence: None)
  Receive Date: 20091215
  Receipt Date: 20091203
  Transmission Date: 20100525
  Serious: Yes (Hospitalization, Other)
  Sender: FDA-Public Use
  Company Number: PR-BAYER-200940773NA

PATIENT
  Age: 74 Year
  Sex: Male
  Weight: 64 kg

DRUGS (31)
  1. LEUKINE [Suspect]
     Indication: DIFFUSE LARGE B-CELL LYMPHOMA
     Dosage: DAY 3  CYCLE 3 TO BE GIVEN X4 DAYS
     Route: 058
     Dates: start: 20091203
  2. LEUKINE [Suspect]
     Dosage: DAY 3  CYCLE 2 TO BE GIVEN X4 DAYS
     Route: 058
     Dates: start: 20091111
  3. LEUKINE [Suspect]
     Dosage: DAY 3  CYCLE 1 TO BE GIVEN X4 DAYS
     Route: 058
     Dates: start: 20091028
  4. RITUXIMAB [Suspect]
     Indication: DIFFUSE LARGE B-CELL LYMPHOMA
     Dosage: DAY 1  CYCLE3
     Route: 042
     Dates: start: 20091201, end: 20091201
  5. RITUXIMAB [Suspect]
     Dosage: DAY 1  CYCLE 1
     Route: 042
     Dates: start: 20091026, end: 20091026
  6. RITUXIMAB [Suspect]
     Dosage: DAY 1  CYCLE 2
     Route: 042
     Dates: start: 20091110, end: 20091110
  7. CYCLOPHOSPHAMIDE [Suspect]
     Indication: DIFFUSE LARGE B-CELL LYMPHOMA
     Dosage: DAY 2  CYCLE 2
     Route: 042
     Dates: start: 20091110, end: 20091110
  8. CYCLOPHOSPHAMIDE [Suspect]
     Dosage: DAY 2  CYCLE 1
     Route: 042
     Dates: start: 20091027, end: 20091027
  9. CYCLOPHOSPHAMIDE [Suspect]
     Dosage: DAY 2  CYCLE3
     Route: 042
     Dates: start: 20091202, end: 20091202
  10. DOXORUBICIN [Suspect]
     Indication: DIFFUSE LARGE B-CELL LYMPHOMA
     Dosage: DAY 2 CYCLE 1
     Route: 042
     Dates: start: 20091027, end: 20091027
  11. DOXORUBICIN [Suspect]
     Dosage: DAY 2 CYCLE 3
     Route: 042
     Dates: start: 20091202, end: 20091202
  12. DOXORUBICIN [Suspect]
     Dosage: DAY 2 CYCLE 2
     Route: 042
     Dates: start: 20091110, end: 20091110
  13. VINCRISTINE [Suspect]
     Indication: DIFFUSE LARGE B-CELL LYMPHOMA
     Dosage: DAY 2 CYCLE 3
     Route: 042
     Dates: start: 20091202, end: 20091202
  14. VINCRISTINE [Suspect]
     Dosage: DAY 2 CYCLE 2
     Route: 042
     Dates: start: 20091110, end: 20091110
  15. VINCRISTINE [Suspect]
     Dosage: DAY 2 CYCLE 1
     Route: 042
     Dates: start: 20091027, end: 20091027
  16. NEULASTA [Suspect]
     Indication: DIFFUSE LARGE B-CELL LYMPHOMA
     Dosage: DAY 3  CYCLE 3
     Route: 058
     Dates: start: 20091203, end: 20091203
  17. NEULASTA [Suspect]
     Dosage: DAY 3  CYCLE 2
     Route: 058
     Dates: start: 20091111, end: 20091111
  18. NEULASTA [Suspect]
     Dosage: DAY 3  CYCLE 1
     Route: 058
     Dates: start: 20091028, end: 20091028
  19. PRANDIN [Concomitant]
  20. AVANDIA [Concomitant]
  21. XANAX [Concomitant]
  22. ZOLOFT [Concomitant]
     Dates: start: 20091106
  23. DIFLUCAN [Concomitant]
     Route: 042
     Dates: start: 20091120
  24. DIFLUCAN [Concomitant]
     Dates: start: 20091106, end: 20091116
  25. LEVAQUIN [Concomitant]
     Dates: start: 20091106, end: 20091113
  26. OXYGEN [Concomitant]
     Route: 045
     Dates: start: 20091118
  27. PHENERGAN HCL [Concomitant]
     Indication: NAUSEA
     Dosage: EVERY 6 HOURS
     Dates: start: 20091118
  28. VASOTEC [Concomitant]
     Indication: BLOOD PRESSURE INCREASED
     Dosage: EVERY 6 HOURS
     Route: 042
     Dates: start: 20091118
  29. INSULIN [Concomitant]
     Dates: start: 20091118
  30. ALPRAZOLAM [Concomitant]
     Route: 048
     Dates: start: 20091118
  31. AMBIEN [Concomitant]
     Route: 048
     Dates: start: 20091118

REACTIONS (9)
  - ANAEMIA [None]
  - CELLULITIS [None]
  - DIARRHOEA [None]
  - FEBRILE NEUTROPENIA [None]
  - GENERAL PHYSICAL HEALTH DETERIORATION [None]
  - MUCOSAL INFLAMMATION [None]
  - POSTOPERATIVE WOUND INFECTION [None]
  - SEPSIS SYNDROME [None]
  - THROMBOCYTOPENIA [None]
